FAERS Safety Report 18688283 (Version 7)
Quarter: 2021Q2

REPORT INFORMATION
  Report Type: Spontaneous
  Country: PL (occurrence: PL)
  Receive Date: 20201231
  Receipt Date: 20210427
  Transmission Date: 20210717
  Serious: Yes (Life-Threatening, Hospitalization, Other)
  Sender: FDA-Public Use
  Company Number: PL-AUROBINDO-AUR-APL-2020-063590

PATIENT
  Age: 69 Year
  Sex: Female

DRUGS (18)
  1. PERINDOPRIL ARGININE/INDAPAMIDE/AMLODIPINE [Suspect]
     Active Substance: AMLODIPINE BESYLATE\INDAPAMIDE\PERINDOPRIL ARGININE
     Indication: HYPERTENSION
     Dosage: 1 DOSAGE FORM, ONCE A DAY, IN THE MORNING
     Route: 048
  2. PROPAFENONE. [Interacting]
     Active Substance: PROPAFENONE
     Indication: ATRIAL FIBRILLATION
     Dosage: 300 MILLIGRAM, AS NECESSARY (AS A SINGLE DOSE)
     Route: 048
  3. ACETYLSALICYLIC ACID [Interacting]
     Active Substance: ASPIRIN
     Indication: UPPER RESPIRATORY TRACT INFECTION
     Dosage: UNK FOR 3 DAYS
     Route: 065
  4. ROSUVASTATIN FILM COATED TABLETS [Suspect]
     Active Substance: ROSUVASTATIN
     Indication: HYPERTENSION
     Dosage: 10 MILLIGRAM, ONCE A DAY
     Route: 048
  5. ACETYLSALICYLIC ACID [Interacting]
     Active Substance: ASPIRIN
     Indication: VIRAL INFECTION
  6. KETOPROFEN. [Suspect]
     Active Substance: KETOPROFEN
     Indication: ARTHRALGIA
     Dosage: UNK, AS NECESSARY, PRN, TAKEN AT TIMES OF SEVERE ARTHRALGIA
     Route: 048
  7. NIMESULID [Interacting]
     Active Substance: NIMESULIDE
     Indication: PAIN
  8. ACETYLSALICYLIC ACID [Interacting]
     Active Substance: ASPIRIN
     Indication: INFECTION
  9. NIMESULID [Interacting]
     Active Substance: NIMESULIDE
     Indication: ANTIINFLAMMATORY THERAPY
     Dosage: 100 MILLIGRAM, TWO TIMES A DAY
     Route: 048
  10. NIMESULID [Interacting]
     Active Substance: NIMESULIDE
     Indication: ANALGESIC THERAPY
  11. METOPROLOL FILM COTED TABLETS 100MG [Suspect]
     Active Substance: METOPROLOL
     Indication: HYPERTENSION
     Dosage: 100 MILLIGRAM, ONCE A DAY
     Route: 048
  12. DABIGATRAN [Interacting]
     Active Substance: DABIGATRAN
     Indication: ISCHAEMIC STROKE
     Dosage: 150 MILLIGRAM, TWO TIMES A DAY
     Route: 048
  13. KETOPROFEN. [Suspect]
     Active Substance: KETOPROFEN
     Indication: ANALGESIC THERAPY
  14. NIMESULID [Interacting]
     Active Substance: NIMESULIDE
     Indication: ANALGESIC INTERVENTION SUPPORTIVE THERAPY
  15. DABIGATRAN [Interacting]
     Active Substance: DABIGATRAN
     Indication: ANTICOAGULANT THERAPY
     Dosage: 300 MILLIGRAM, ONCE A DAY
     Route: 065
  16. ITRACONAZOL [Interacting]
     Active Substance: ITRACONAZOLE
     Indication: TINEA VERSICOLOUR
     Dosage: 100 MILLIGRAM, TWO TIMES A DAY FOR 7 DAYS
     Route: 048
  17. METOPROLOL FILM COTED TABLETS 100MG [Interacting]
     Active Substance: METOPROLOL
     Dosage: 200 MILLIGRAM, ONCE A DAY
     Route: 065
  18. DABIGATRAN [Interacting]
     Active Substance: DABIGATRAN
     Indication: PROPHYLAXIS

REACTIONS (25)
  - Asthenia [Recovered/Resolved]
  - Atrioventricular block [Unknown]
  - Duplicate therapy error [Recovered/Resolved]
  - Product prescribing issue [Recovered/Resolved]
  - Overdose [Unknown]
  - Gastrointestinal haemorrhage [Recovered/Resolved]
  - Pallor [Recovered/Resolved]
  - Bradyarrhythmia [Recovered/Resolved]
  - Circumstance or information capable of leading to medication error [Recovering/Resolving]
  - Product use issue [Unknown]
  - Labelled drug-drug interaction medication error [Unknown]
  - Drug interaction [Recovered/Resolved]
  - Anaemia [Recovered/Resolved]
  - Drug ineffective [Unknown]
  - Incorrect dose administered [Unknown]
  - Intentional product use issue [Unknown]
  - Off label use [Unknown]
  - Atrioventricular block complete [Recovered/Resolved]
  - Haemorrhage [Unknown]
  - Gastritis erosive [Recovered/Resolved]
  - Syncope [Recovered/Resolved]
  - Cardiomyopathy [Recovered/Resolved]
  - Troponin increased [Recovered/Resolved]
  - Drug-disease interaction [Recovered/Resolved]
  - Product dispensing issue [Unknown]
